FAERS Safety Report 10096996 (Version 2)
Quarter: 2014Q2

REPORT INFORMATION
  Report Type: Spontaneous
  Country: US (occurrence: US)
  Receive Date: 20140422
  Receipt Date: 20140422
  Transmission Date: 20141212
  Serious: No
  Sender: FDA-Public Use
  Company Number: US-GILEAD-2012-0063086

PATIENT
  Age: 59 Year
  Sex: 0
  Weight: 167 kg

DRUGS (6)
  1. LETAIRIS [Suspect]
     Indication: PULMONARY HYPERTENSION
     Dosage: 5 MG, UNK
     Route: 048
     Dates: start: 20120926, end: 201210
  2. LETAIRIS [Suspect]
     Indication: SARCOIDOSIS
     Dosage: 5 MG, UNK
     Route: 048
     Dates: start: 201210, end: 20121011
  3. LETAIRIS [Suspect]
     Indication: CARDIAC FAILURE
  4. ADVAIR [Concomitant]
     Dosage: UNK
     Route: 055
  5. VENTOLIN HFA [Concomitant]
     Route: 055
  6. PREDNISONE [Concomitant]
     Dosage: 10 MG, UNK
     Route: 048
     Dates: start: 2009

REACTIONS (5)
  - Insomnia [Unknown]
  - Rectal haemorrhage [Recovering/Resolving]
  - Dizziness [Recovering/Resolving]
  - Dizziness [Recovering/Resolving]
  - Nausea [Recovering/Resolving]
